FAERS Safety Report 12667196 (Version 1)
Quarter: 2016Q3

REPORT INFORMATION
  Report Type: Spontaneous
  Country: FR (occurrence: FR)
  Receive Date: 20160819
  Receipt Date: 20160819
  Transmission Date: 20161109
  Serious: Yes (Hospitalization)
  Sender: FDA-Public Use
  Company Number: FR-ROCHE-1816246

PATIENT
  Age: 82 Year
  Sex: Male

DRUGS (16)
  1. PANTOPRAZOLE [Concomitant]
     Active Substance: PANTOPRAZOLE SODIUM
  2. FUROSEMIDE. [Concomitant]
     Active Substance: FUROSEMIDE
  3. ELIQUIS [Concomitant]
     Active Substance: APIXABAN
     Route: 065
     Dates: start: 201604
  4. ESBRIET [Suspect]
     Active Substance: PIRFENIDONE
     Indication: PULMONARY FIBROSIS
     Route: 048
     Dates: start: 201602
  5. ZOPICLONE [Concomitant]
     Active Substance: ZOPICLONE
  6. BISOPROLOL [Concomitant]
     Active Substance: BISOPROLOL
  7. BETAMETHASONE. [Concomitant]
     Active Substance: BETAMETHASONE
  8. PREVISCAN (FRANCE) [Suspect]
     Active Substance: FLUINDIONE
     Indication: THROMBOSIS PROPHYLAXIS
     Route: 048
     Dates: start: 201601
  9. PARACETAMOL [Concomitant]
     Active Substance: ACETAMINOPHEN
  10. PREGABALINE [Concomitant]
     Active Substance: PREGABALIN
  11. PREVISCAN (FRANCE) [Suspect]
     Active Substance: FLUINDIONE
     Route: 048
     Dates: start: 201607
  12. BROMAZEPAM [Concomitant]
     Active Substance: BROMAZEPAM
     Route: 065
  13. ALIMEMAZINE [Concomitant]
     Active Substance: TRIMEPRAZINE
  14. IRBESARTAN. [Concomitant]
     Active Substance: IRBESARTAN
  15. HYDROXYZINE [Concomitant]
     Active Substance: HYDROXYZINE\HYDROXYZINE HYDROCHLORIDE
  16. TAMSULOSINE [Concomitant]
     Active Substance: TAMSULOSIN HYDROCHLORIDE

REACTIONS (1)
  - Dermatitis exfoliative [Not Recovered/Not Resolved]

NARRATIVE: CASE EVENT DATE: 201607
